FAERS Safety Report 11221330 (Version 5)
Quarter: 2016Q1

REPORT INFORMATION
  Report Type: Spontaneous
  Country: US (occurrence: US)
  Receive Date: 20150626
  Receipt Date: 20160325
  Transmission Date: 20160525
  Serious: Yes (Life-Threatening, Hospitalization, Other)
  Sender: FDA-Public Use
  Company Number: US-BAYER-2015-361097

PATIENT
  Age: 21 Year
  Sex: Female
  Weight: 40.82 kg

DRUGS (21)
  1. ELMIRON [Concomitant]
     Active Substance: PENTOSAN POLYSULFATE SODIUM
     Dosage: 100 MG, 2-3 TIMES DAILY
  2. TORADOL [Concomitant]
     Active Substance: KETOROLAC TROMETHAMINE
  3. DEPO-MEDROL [Concomitant]
     Active Substance: METHYLPREDNISOLONE ACETATE
  4. PROAIR HFA [Concomitant]
     Active Substance: ALBUTEROL SULFATE
     Indication: WHEEZING
     Dosage: 90 MCG/ACTUATION, 2 PUFFS EVERY 4-6 PRN
     Route: 045
  5. CIPROFLOXACIN. [Concomitant]
     Active Substance: CIPROFLOXACIN
     Dosage: 500 MG, QD FOR 10 DAYS
  6. TRAZODONE [Concomitant]
     Active Substance: TRAZODONE HYDROCHLORIDE
     Dosage: AS NEEDED
  7. AMBIEN [Concomitant]
     Active Substance: ZOLPIDEM TARTRATE
     Route: 048
  8. LEVOTHYROXINE. [Concomitant]
     Active Substance: LEVOTHYROXINE
     Dosage: 25 MCG/24HR, QD
  9. BENZONATATE. [Concomitant]
     Active Substance: BENZONATATE
     Dosage: 200 MG, UNK
  10. MIRENA [Suspect]
     Active Substance: LEVONORGESTREL
     Indication: CONTRACEPTION
     Dosage: 20 MCG/24HR, CONT
     Route: 015
     Dates: start: 20110523, end: 20141124
  11. FLUTICASONE [Concomitant]
     Active Substance: FLUTICASONE\FLUTICASONE PROPIONATE
     Dosage: 50 MCG/ACTUATION, 2 SPRAYS IN EACH NOSTRIL DAILY AT HS
     Route: 045
  12. OFLOXACIN. [Concomitant]
     Active Substance: OFLOXACIN
     Dosage: 0.3%
  13. TRAMADOL. [Concomitant]
     Active Substance: TRAMADOL
  14. ZYRTEC [Concomitant]
     Active Substance: CETIRIZINE HYDROCHLORIDE
     Dosage: 10 MG, QD
     Route: 048
  15. AZITHROMYCIN ANHYDROUS. [Concomitant]
     Active Substance: AZITHROMYCIN ANHYDROUS
  16. LINZESS [Concomitant]
     Active Substance: LINACLOTIDE
     Dosage: 290 MCG DAILY
     Route: 048
  17. ZOFRAN [Concomitant]
     Active Substance: ONDANSETRON HYDROCHLORIDE
  18. PREVACID [Concomitant]
     Active Substance: LANSOPRAZOLE
  19. NUVARING [Concomitant]
     Active Substance: ETHINYL ESTRADIOL\ETONOGESTREL
     Dosage: UNK
  20. GABAPENTIN. [Concomitant]
     Active Substance: GABAPENTIN
  21. CLONAZEPAM. [Concomitant]
     Active Substance: CLONAZEPAM
     Dosage: 0.5 MG, BID
     Route: 048

REACTIONS (17)
  - Gastrointestinal disorder [None]
  - Vomiting [None]
  - Pain [None]
  - Dehydration [None]
  - Stress [None]
  - Malaise [Recovered/Resolved]
  - Injury [None]
  - Abdominal pain upper [None]
  - Cystitis noninfective [None]
  - Pelvic inflammatory disease [Recovered/Resolved]
  - Genital haemorrhage [None]
  - Nausea [None]
  - Medical device site scar [None]
  - Emotional distress [None]
  - Blood pressure decreased [None]
  - Device dislocation [None]
  - Mood swings [None]

NARRATIVE: CASE EVENT DATE: 2011
